FAERS Safety Report 21658622 (Version 1)
Quarter: 2022Q4

REPORT INFORMATION
  Report Type: Spontaneous
  Country: AT (occurrence: AT)
  Receive Date: 20221129
  Receipt Date: 20221129
  Transmission Date: 20230113
  Serious: Yes (Life-Threatening, Hospitalization)
  Sender: FDA-Public Use
  Company Number: AT-PFIZER INC-PV202200113123

PATIENT
  Age: 89 Year
  Sex: Male

DRUGS (2)
  1. IBRANCE [Suspect]
     Active Substance: PALBOCICLIB
     Indication: Breast cancer metastatic
     Dosage: 75 MG, FOR APPROX. 14 DAYS
     Dates: start: 202211
  2. TAMOXIFEN [Concomitant]
     Active Substance: TAMOXIFEN
     Indication: Breast cancer metastatic
     Dosage: FOR APPROX. 14 DAYS
     Dates: start: 202211

REACTIONS (2)
  - Neutropenia [Unknown]
  - Pneumonia [Unknown]
